FAERS Safety Report 9490824 (Version 1)
Quarter: 2013Q3

REPORT INFORMATION
  Report Type: Spontaneous
  Country: US (occurrence: None)
  Receive Date: 20130828
  Receipt Date: 20130828
  Transmission Date: 20140515
  Serious: No
  Sender: FDA-Public Use
  Company Number: None

PATIENT
  Age: 81 Year
  Sex: Male
  Weight: 61.24 kg

DRUGS (12)
  1. SULFAMETHOXAZOLE [Suspect]
     Indication: PROSTATITIS
     Dosage: 60 PILLS
     Route: 048
     Dates: start: 20130731, end: 20130803
  2. VIT. C [Concomitant]
  3. B-12 [Concomitant]
  4. ZINC [Concomitant]
  5. LUTEIN [Concomitant]
  6. ALPHA LIPOIC ACID [Concomitant]
  7. SAW PALMETTO [Concomitant]
  8. D-3 [Concomitant]
  9. FISH OIL [Concomitant]
  10. MAGNESIUM [Concomitant]
  11. CO Q 10 [Concomitant]
  12. PROBIOTIC [Concomitant]

REACTIONS (1)
  - Ligament pain [None]
